FAERS Safety Report 21921036 (Version 7)
Quarter: 2023Q1

REPORT INFORMATION
  Report Type: Report from Study
  Country: BR (occurrence: None)
  Receive Date: 20230127
  Receipt Date: 20230328
  Transmission Date: 20230418
  Serious: Yes (Hospitalization)
  Sender: FDA-Public Use
  Company Number: BR-ROCHE-3269381

PATIENT
  Age: 63 Year
  Sex: Female
  Weight: 55.6 kg

DRUGS (9)
  1. MOSUNETUZUMAB [Suspect]
     Active Substance: MOSUNETUZUMAB
     Indication: B-cell lymphoma
     Dosage: ON 17/JAN/2023, SHE RECEIVED MOST RECENT DOSE OF MOSUNETUZUMAB PRIOR TO AE/SAE 5 MG.?ON 24/JAN/2023,
     Route: 058
     Dates: start: 20230117
  2. POLATUZUMAB VEDOTIN [Suspect]
     Active Substance: POLATUZUMAB VEDOTIN
     Indication: B-cell lymphoma
     Dosage: ON 17/JAN/2023, SHE RECEIVED MOST RECENT DOSE OF POLATUZUMAB VEDOTIN PRIOR TO AE/SAE 1.8 MG.
     Route: 042
     Dates: start: 20230117
  3. FENTANYL [Concomitant]
     Active Substance: FENTANYL
     Dosage: 25 OTHER
     Route: 062
     Dates: start: 20230120, end: 20230126
  4. ACETAMINOPHEN [Concomitant]
     Active Substance: ACETAMINOPHEN
     Route: 048
     Dates: start: 20230120
  5. METOCLOPRAMIDE [Concomitant]
     Active Substance: METOCLOPRAMIDE
     Indication: Nausea
     Route: 048
     Dates: start: 20230120, end: 20230126
  6. CODEINE [Concomitant]
     Active Substance: CODEINE
     Route: 048
     Dates: start: 20230120, end: 20230126
  7. GABAPENTIN [Concomitant]
     Active Substance: GABAPENTIN
     Route: 048
     Dates: start: 20230120, end: 20230126
  8. FENOFIBRATE [Concomitant]
     Active Substance: FENOFIBRATE
     Route: 048
     Dates: start: 201201
  9. CYCLOBENZAPRINE [Concomitant]
     Active Substance: CYCLOBENZAPRINE
     Route: 048
     Dates: start: 20230113, end: 20230114

REACTIONS (2)
  - Tumour pain [Recovered/Resolved]
  - Cytokine release syndrome [Recovered/Resolved]

NARRATIVE: CASE EVENT DATE: 20230118
